FAERS Safety Report 8069154 (Version 3)
Quarter: 2013Q2

REPORT INFORMATION
  Report Type: Spontaneous
  Country: US (occurrence: US)
  Receive Date: 20110804
  Receipt Date: 20130424
  Transmission Date: 20140414
  Serious: Yes (Other)
  Sender: FDA-Public Use
  Company Number: US-ROCHE-772903

PATIENT
  Age: 14 Year
  Sex: Male
  Weight: 61.2 kg

DRUGS (1)
  1. ACCUTANE [Suspect]
     Indication: ACNE
     Dosage: DOSE: 40/20 QD
     Route: 065
     Dates: start: 199905, end: 199909

REACTIONS (10)
  - Colitis ulcerative [Unknown]
  - Inflammatory bowel disease [Unknown]
  - Stress [Unknown]
  - Nasal dryness [Unknown]
  - Lip dry [Unknown]
  - Dry eye [Unknown]
  - Chapped lips [Unknown]
  - Epistaxis [Unknown]
  - Sunburn [Unknown]
  - Dry skin [Unknown]
